FAERS Safety Report 17516832 (Version 7)
Quarter: 2021Q3

REPORT INFORMATION
  Report Type: Report from Study
  Country: CO (occurrence: CO)
  Receive Date: 20200309
  Receipt Date: 20210907
  Transmission Date: 20211014
  Serious: Yes (Death, Hospitalization, Other)
  Sender: FDA-Public Use
  Company Number: CO-ASTELLAS-2018US004183

PATIENT
  Age: 49 Year
  Sex: Male

DRUGS (19)
  1. ENALAPRIL [Concomitant]
     Active Substance: ENALAPRIL
     Indication: PRODUCT USED FOR UNKNOWN INDICATION
     Dosage: UNK UNK, UNKNOWN FREQ.
     Route: 065
  2. TACROLIMUS. [Suspect]
     Active Substance: TACROLIMUS
     Indication: HEART TRANSPLANT
     Dosage: 3 MG, ONCE DAILY (1 MG )
     Route: 048
     Dates: start: 20090429
  3. CELLCEPT [Concomitant]
     Active Substance: MYCOPHENOLATE MOFETIL\MYCOPHENOLATE MOFETIL HYDROCHLORIDE
     Indication: IMMUNOSUPPRESSANT DRUG THERAPY
  4. PREDNISOLONE. [Concomitant]
     Active Substance: PREDNISOLONE
     Indication: PRODUCT USED FOR UNKNOWN INDICATION
     Route: 048
     Dates: start: 20081029
  5. ASA [Concomitant]
     Active Substance: ASPIRIN
     Indication: BLOOD DISORDER
     Route: 048
  6. OMEPRAZOLE. [Concomitant]
     Active Substance: OMEPRAZOLE
     Indication: CHRONIC GASTRITIS
     Route: 048
  7. ROSUVASTATIN. [Concomitant]
     Active Substance: ROSUVASTATIN
     Indication: BLOOD CHOLESTEROL
     Route: 048
     Dates: start: 2011
  8. TACROLIMUS. [Suspect]
     Active Substance: TACROLIMUS
     Dosage: 2 MG, ONCE DAILY (2 CAPSULES OF 1 MG)
     Route: 048
     Dates: start: 20090501
  9. CALCITROL [Concomitant]
     Indication: BONE DISORDER
     Dosage: 0.25 ?G, ONCE DAILY
     Route: 048
  10. RIVAROXABAN [Concomitant]
     Active Substance: RIVAROXABAN
     Indication: PRODUCT USED FOR UNKNOWN INDICATION
     Dosage: UNK UNK, UNKNOWN FREQ.
     Route: 065
  11. ATORVASTATIN [Concomitant]
     Active Substance: ATORVASTATIN
     Indication: PRODUCT USED FOR UNKNOWN INDICATION
     Dosage: UNK UNK, UNKNOWN FREQ.
     Route: 065
  12. CELLCEPT [Concomitant]
     Active Substance: MYCOPHENOLATE MOFETIL\MYCOPHENOLATE MOFETIL HYDROCHLORIDE
     Indication: HEART TRANSPLANT
     Route: 065
     Dates: start: 20081029
  13. TACROLIMUS. [Suspect]
     Active Substance: TACROLIMUS
     Route: 048
     Dates: start: 20091029
  14. TACROLIMUS. [Suspect]
     Active Substance: TACROLIMUS
     Route: 065
     Dates: start: 202105
  15. TACROLIMUS. [Suspect]
     Active Substance: TACROLIMUS
     Dosage: 0.5 MG, ONCE DAILY
     Route: 048
  16. TACROLIMUS. [Suspect]
     Active Substance: TACROLIMUS
     Dosage: 0.5 MG, ONCE DAILY
     Route: 048
  17. CARVEDILOL. [Concomitant]
     Active Substance: CARVEDILOL
     Indication: PRODUCT USED FOR UNKNOWN INDICATION
     Dosage: UNK UNK, UNKNOWN FREQ.
     Route: 065
  18. CALCIUM CARBONATE. [Concomitant]
     Active Substance: CALCIUM CARBONATE
     Indication: BONE DISORDER
     Route: 048
     Dates: start: 2013
  19. ALENDRONATE SODIUM. [Concomitant]
     Active Substance: ALENDRONATE SODIUM
     Indication: BONE DISORDER
     Route: 048
     Dates: start: 2013

REACTIONS (22)
  - Heart transplant rejection [Recovered/Resolved]
  - Heart transplant rejection [Recovered/Resolved]
  - Abdominal pain upper [Not Recovered/Not Resolved]
  - Pneumonia [Recovered/Resolved]
  - Diarrhoea [Recovering/Resolving]
  - Fall [Recovering/Resolving]
  - Loss of consciousness [Recovered/Resolved]
  - Immunosuppressant drug level decreased [Not Recovered/Not Resolved]
  - Pleomorphic adenoma [Not Recovered/Not Resolved]
  - Product supply issue [Unknown]
  - Gait disturbance [Recovering/Resolving]
  - Amnesia [Recovered/Resolved]
  - Dysarthria [Recovered/Resolved]
  - Death [Fatal]
  - Myocardial infarction [Recovering/Resolving]
  - Cardiac failure [Not Recovered/Not Resolved]
  - Sensory loss [Recovering/Resolving]
  - Haemoptysis [Recovered/Resolved]
  - Sensory loss [Not Recovered/Not Resolved]
  - Pain in extremity [Recovering/Resolving]
  - Vomiting [Recovered/Resolved]
  - Aspergillus infection [Unknown]

NARRATIVE: CASE EVENT DATE: 20131215
